FAERS Safety Report 21563141 (Version 1)
Quarter: 2022Q4

REPORT INFORMATION
  Report Type: Spontaneous
  Country: US (occurrence: US)
  Receive Date: 20221107
  Receipt Date: 20221107
  Transmission Date: 20230112
  Serious: No
  Sender: FDA-Public Use
  Company Number: US-SA-SAC20221102000629

PATIENT
  Sex: Male

DRUGS (2)
  1. DUPIXENT [Suspect]
     Active Substance: DUPILUMAB
     Indication: Rash
     Dosage: 300 MG; FREQUENCY: OTHER
     Route: 058
  2. CYCLOSPORINE [Concomitant]
     Active Substance: CYCLOSPORINE

REACTIONS (1)
  - Therapeutic product ineffective for unapproved indication [Unknown]
